FAERS Safety Report 5145502-8 (Version None)
Quarter: 2006Q4

REPORT INFORMATION
  Report Type: 
  Country: None (occurrence: None)
  Receive Date: 20061102
  Receipt Date: 20061026
  Transmission Date: 20070319
  Serious: Yes (Death, Hospitalization, Other)
  Sender: FDA-Public Use
  Company Number: 062-C5013-06091079

PATIENT
  Age: 56 Year
  Sex: Female
  Weight: 103 kg

DRUGS (5)
  1. CC-5013 (LENALIDOMIDE) (CAPSULES) [Suspect]
     Indication: MYELODYSPLASTIC SYNDROME
     Dosage: 15 MG, 1 IN 1 D, ORAL
     Route: 048
     Dates: start: 20060912, end: 20060925
  2. OMEBETA (OMEPRAZOLE) [Concomitant]
  3. DESFERAL (DEFEROXAMINE MESILATE) [Concomitant]
  4. TRAMADOL HCL [Concomitant]
  5. CETIRIZINE HCL [Concomitant]

REACTIONS (4)
  - BONE MARROW FAILURE [None]
  - COUGH [None]
  - EMBOLISM [None]
  - SEPSIS [None]
